FAERS Safety Report 16266220 (Version 5)
Quarter: 2020Q1

REPORT INFORMATION
  Report Type: Spontaneous
  Country: JP (occurrence: JP)
  Receive Date: 20190502
  Receipt Date: 20200127
  Transmission Date: 20200409
  Serious: Yes (Death, Life-Threatening, Other)
  Sender: FDA-Public Use
  Company Number: JP-BRISTOL-MYERS SQUIBB COMPANY-BMS-2019-042216

PATIENT
  Age: 79 Year
  Sex: Male
  Weight: 46.6 kg

DRUGS (4)
  1. OPDIVO [Suspect]
     Active Substance: NIVOLUMAB
     Indication: HEAD AND NECK CANCER
     Dosage: 240 MG, Q3W
     Route: 041
     Dates: start: 20190416, end: 20190424
  2. CILOSTAZOL. [Concomitant]
     Active Substance: CILOSTAZOL
     Indication: CEREBRAL INFARCTION
     Dosage: 50 MILLIGRAM, Q12H
     Route: 048
  3. CALONAL [Concomitant]
     Active Substance: ACETAMINOPHEN
     Indication: HYPOPHARYNGEAL CANCER
     Dosage: 400 MILLIGRAM, Q8H
     Route: 048
  4. AMBROXOL HYDROCHLORIDE [Concomitant]
     Active Substance: AMBROXOL HYDROCHLORIDE
     Indication: PRODUCT USED FOR UNKNOWN INDICATION
     Dosage: 45 MILLIGRAM, QD
     Route: 048

REACTIONS (3)
  - Drug-device incompatibility [Unknown]
  - Infusion related reaction [Recovered/Resolved]
  - Vascular device infection [Fatal]

NARRATIVE: CASE EVENT DATE: 20190416
